FAERS Safety Report 6897163-5 (Version None)
Quarter: 2010Q3

REPORT INFORMATION
  Report Type: 
  Country: None (occurrence: None)
  Receive Date: 20100802
  Receipt Date: 20070426
  Transmission Date: 20110219
  Serious: No
  Sender: FDA-Public Use
  Company Number: US-PFIZER INC-2007034623

PATIENT
  Sex: Male
  Weight: 72.727 kg

DRUGS (4)
  1. LYRICA [Suspect]
     Indication: NEURALGIA
     Dates: start: 20070425
  2. OXYCONTIN [Concomitant]
  3. GLUCOSAMINE [Concomitant]
  4. TYLENOL [Concomitant]

REACTIONS (4)
  - MALAISE [None]
  - NAUSEA [None]
  - SOMNOLENCE [None]
  - VOMITING [None]
